FAERS Safety Report 6062925-3 (Version None)
Quarter: 2009Q1

REPORT INFORMATION
  Report Type: 
  Country: None (occurrence: None)
  Receive Date: 20090129
  Receipt Date: 20090115
  Transmission Date: 20090719
  Serious: Yes (Hospitalization)
  Sender: FDA-Public Use
  Company Number: 2009S1000767

PATIENT
  Age: 72 Year
  Sex: Female

DRUGS (13)
  1. ALENDRONIC ACID (ALENDRONIC ACID) [Suspect]
     Indication: OSTEOARTHRITIS
  2. CARBAMAZEPINE [Suspect]
     Indication: EPILEPSY
     Dosage: 200 MG, Q8H, ORAL
     Route: 048
  3. WARFARIN SODIUM [Suspect]
     Indication: DEEP VEIN THROMBOSIS
     Dosage: DAILY; ORAL
     Route: 048
  4. CALCICHEW /00108001/ (CALCIUM CARBONATE) [Suspect]
     Indication: OSTEOARTHRITIS
     Dosage: 1 DF, DAILY, ORAL
     Route: 048
  5. CODEINE PHOSPHATE (CODEINE PHOSPHATE) [Suspect]
     Indication: MIGRAINE
     Dosage: ORAL
     Route: 048
  6. GAVISCON [Suspect]
     Indication: ILL-DEFINED DISORDER
     Dosage: ORAL
     Route: 048
  7. PANTOPRAZOLE SODIUM [Suspect]
     Indication: ILL-DEFINED DISORDER
     Dosage: 20 MG, DAILY, ORAL
     Route: 048
  8. ACETAMINOPHEN [Suspect]
     Indication: MIGRAINE
     Dosage: ORAL
     Route: 048
  9. RISEDRONATE SODIUM [Suspect]
     Indication: OSTEOARTHRITIS
     Dosage: 35 MG; DAILY, ORAL
     Route: 048
  10. SERETIDE (SERETIDE /01420901/) [Suspect]
     Indication: ASTHMA
     Dosage: 2 DF, TWICE A DAY; INHALATION
     Route: 055
     Dates: start: 20050101
  11. LEVOTHYROXINE SODIUM [Suspect]
     Indication: HYPOTHYROIDISM
     Dosage: 100 UG, DAILY, ORAL
     Route: 048
  12. VENTOLIN [Suspect]
     Indication: ASTHMA
     Dosage: INHALATION
     Route: 055
  13. ZOLMITRIPTAN (ZOLMITRIPTAN) [Suspect]
     Indication: MIGRAINE
     Dosage: ORAL
     Route: 048

REACTIONS (3)
  - CEREBROVASCULAR ACCIDENT [None]
  - COUGH [None]
  - DYSPNOEA [None]
